FAERS Safety Report 12443401 (Version 1)
Quarter: 2016Q2

REPORT INFORMATION
  Report Type: Spontaneous
  Country: US (occurrence: US)
  Receive Date: 20160607
  Receipt Date: 20160607
  Transmission Date: 20160815
  Serious: Yes (Hospitalization)
  Sender: FDA-Public Use
  Company Number: US-PFIZER INC-2016285538

PATIENT
  Age: 70 Year
  Sex: Male
  Weight: 68.4 kg

DRUGS (1)
  1. INLYTA [Suspect]
     Active Substance: AXITINIB
     Indication: RENAL CANCER
     Dosage: 5 MG, 2X/DAY (5MG, 1 TABLET BY MOUTH TWICE DAILY)
     Route: 048
     Dates: start: 2015

REACTIONS (5)
  - Renal cancer [Unknown]
  - Cardiac failure [Recovering/Resolving]
  - Disease progression [Unknown]
  - Expired product administered [Unknown]
  - Pneumonia [Recovering/Resolving]

NARRATIVE: CASE EVENT DATE: 20160512
